FAERS Safety Report 5819769-4 (Version None)
Quarter: 2008Q3

REPORT INFORMATION
  Report Type: 
  Country: None (occurrence: None)
  Receive Date: 20080723
  Receipt Date: 20080715
  Transmission Date: 20090109
  Serious: Yes (Hospitalization)
  Sender: FDA-Public Use
  Company Number: DE-GENENTECH-264759

PATIENT
  Sex: Male
  Weight: 78 kg

DRUGS (6)
  1. BEVACIZUMAB [Suspect]
     Indication: COLORECTAL CANCER METASTATIC
     Dosage: 390 MG, Q14D
     Route: 042
     Dates: start: 20080614
  2. IRINOTECAN HCL [Suspect]
     Indication: COLORECTAL CANCER METASTATIC
     Dosage: 353 MG, Q14D
     Route: 042
     Dates: start: 20080612
  3. FLUOROURACIL [Suspect]
     Indication: COLORECTAL CANCER METASTATIC
     Dosage: 5486 MG, Q14D
     Route: 042
     Dates: start: 20080612
  4. FOLINIC ACID [Suspect]
     Indication: COLORECTAL CANCER METASTATIC
     Dosage: 784 MG, Q14D
     Route: 042
     Dates: start: 20080612
  5. METOCLOPRAMIDE [Concomitant]
     Indication: VOMITING
  6. LEXOTANIL [Concomitant]
     Indication: SLEEP DISORDER

REACTIONS (2)
  - PYREXIA [None]
  - URINARY TRACT INFECTION [None]
